FAERS Safety Report 16436049 (Version 1)
Quarter: 2019Q2

REPORT INFORMATION
  Report Type: Spontaneous
  Country: US (occurrence: US)
  Receive Date: 20190614
  Receipt Date: 20190614
  Transmission Date: 20190711
  Serious: No
  Sender: FDA-Public Use
  Company Number: US-JNJFOC-20170601186

PATIENT
  Age: 87 Year
  Sex: Female
  Weight: 49.9 kg

DRUGS (1)
  1. TYLENOL REGULAR STRENGTH [Suspect]
     Active Substance: ACETAMINOPHEN
     Indication: NEURALGIA
     Route: 048
     Dates: start: 20170531, end: 20170531

REACTIONS (3)
  - Foreign body in respiratory tract [Recovered/Resolved]
  - Product use in unapproved indication [Unknown]
  - Regurgitation [Recovered/Resolved]

NARRATIVE: CASE EVENT DATE: 20170531
